FAERS Safety Report 8480808-6 (Version None)
Quarter: 2012Q2

REPORT INFORMATION
  Report Type: 
  Country: None (occurrence: None)
  Receive Date: 20120626
  Receipt Date: 20120626
  Transmission Date: 20120825
  Serious: Yes (Hospitalization)
  Sender: FDA-Public Use
  Company Number: None

PATIENT
  Sex: Male
  Weight: 69.8539 kg

DRUGS (1)
  1. LEVOFLOXACIN [Suspect]
     Indication: INFECTION
     Dosage: 500 MG Q 24 HOURS IV 2 DOSES IN APPOX 48 HRS
     Route: 042
     Dates: start: 20120618, end: 20120619

REACTIONS (1)
  - PANCREATITIS ACUTE [None]
